FAERS Safety Report 6520249-1 (Version None)
Quarter: 2009Q4

REPORT INFORMATION
  Report Type: 
  Country: None (occurrence: None)
  Receive Date: 20091229
  Receipt Date: 20091221
  Transmission Date: 20100525
  Serious: Yes (Hospitalization)
  Sender: FDA-Public Use
  Company Number: US-TYCO HEALTHCARE/MALLINCKRODT-T200902348

PATIENT
  Age: 77 Year
  Sex: Female
  Weight: 68 kg

DRUGS (23)
  1. RESTORIL [Suspect]
     Indication: INSOMNIA
     Dosage: 15 MG, QD
     Route: 048
     Dates: start: 20080710
  2. SLV320 [Suspect]
     Indication: CARDIAC FAILURE ACUTE
     Dosage: 3.75 MG, BID
     Dates: start: 20090519, end: 20090521
  3. SLV320 [Suspect]
     Indication: RENAL IMPAIRMENT
  4. GABAPENTIN [Suspect]
     Indication: NEUROPATHY PERIPHERAL
     Dosage: 600 MG, TID
     Route: 048
     Dates: start: 20071011
  5. XANAX [Suspect]
     Indication: ANXIETY
     Dosage: 0.25 MG, QID
     Route: 048
     Dates: start: 19961001
  6. DARVOCET-N 100 [Concomitant]
     Indication: PAIN
     Dosage: UNK, ONE Q6 HOURS
     Dates: start: 20050120
  7. COREG [Concomitant]
     Dosage: 3.125 MG
     Dates: start: 20080710
  8. PROTONIX                           /01263201/ [Concomitant]
     Dosage: 40 MG, QD
     Dates: start: 20080710
  9. LEVAQUIN [Concomitant]
     Dosage: 500 MG, QD
     Dates: start: 20090521, end: 20090523
  10. VANCOMYCIN [Concomitant]
     Dosage: 500 MG, BID
     Dates: start: 20090523, end: 20090528
  11. ZYVOX [Concomitant]
     Dosage: 600 MG, QD
     Dates: start: 20090527, end: 20090530
  12. LASIX [Concomitant]
     Dosage: 80
     Route: 042
     Dates: start: 20090518, end: 20090518
  13. SOLU-MEDROL [Concomitant]
     Dosage: 125
     Route: 042
     Dates: start: 20090523, end: 20090523
  14. NITROGLYCERIN [Concomitant]
     Dosage: UNK, 1 Q8 HOURS
     Dates: start: 20090518, end: 20090528
  15. MYSOLINE [Concomitant]
     Dosage: 25 MG, HS
     Dates: start: 20090421
  16. AMIODARONE [Concomitant]
     Dosage: 200 MG QD
     Dates: start: 20090421
  17. ADVAIR DISKUS 100/50 [Concomitant]
     Dosage: 1 INHALATION TWICE A DAY UNIT DOSE 250/50
     Dates: start: 20080710
  18. LEXAPRO [Concomitant]
     Dosage: 20 MG DAILY
     Dates: start: 20080710
  19. PLAVIX [Concomitant]
     Dosage: 75 MG QD
     Dates: start: 20070107
  20. FUROSEMIDE [Concomitant]
     Dosage: 40 MG, QD
     Dates: start: 19970408
  21. ATROVENT [Concomitant]
     Dosage: UNK, 2 INHALATIONS QID
     Route: 050
     Dates: start: 19970403
  22. ALBUTEROL [Concomitant]
     Dosage: UNK, 2 INHALATIONS Q 4 HOURS PRN
     Route: 050
     Dates: start: 19970403
  23. CITALOPRAM HYDROBROMIDE [Concomitant]
     Dosage: 20 MG QD
     Dates: start: 20080710

REACTIONS (2)
  - FALL [None]
  - ULNA FRACTURE [None]
